FAERS Safety Report 7769792-8 (Version None)
Quarter: 2011Q3

REPORT INFORMATION
  Report Type: 
  Country: None (occurrence: None)
  Receive Date: 20110922
  Receipt Date: 20110113
  Transmission Date: 20111222
  Serious: Yes (Other)
  Sender: FDA-Public Use
  Company Number: US-ASTRAZENECA-2006UW20474

PATIENT
  Age: 18139 Day
  Sex: Male
  Weight: 117.5 kg

DRUGS (24)
  1. SEROQUEL [Suspect]
     Indication: SCHIZOPHRENIA
     Route: 048
     Dates: start: 19970101, end: 20000101
  2. ZOLPIDEM TARTRATE [Concomitant]
     Indication: SLEEP DISORDER
  3. ZYPREXA [Suspect]
     Dosage: 5-20 MG
     Route: 048
  4. TRICOR [Concomitant]
  5. DESYREL [Concomitant]
  6. GLYBURIDE [Concomitant]
     Indication: DIABETES MELLITUS
     Route: 048
  7. AVANDIA [Concomitant]
  8. ARTANE [Concomitant]
  9. LEVODOPA [Concomitant]
     Dosage: 25/100
     Route: 048
  10. RISPERDAL [Concomitant]
  11. BUPROPION HCL [Concomitant]
     Route: 048
  12. ZYPREXA [Suspect]
     Route: 048
     Dates: start: 20020101, end: 20050701
  13. METFORMIN [Concomitant]
     Route: 048
  14. GLUCOTROL [Concomitant]
     Indication: DIABETES MELLITUS
     Route: 048
  15. SEROQUEL [Suspect]
     Indication: BIPOLAR DISORDER
     Route: 048
     Dates: start: 19970101, end: 20000101
  16. SEROQUEL [Suspect]
     Route: 048
     Dates: start: 19990315
  17. GEMFIBROZIL [Concomitant]
     Route: 048
  18. ENALAPRIL MALEATE [Concomitant]
     Dosage: 5-20 MG DAILY
     Route: 048
  19. LITHIUM CARBONATE [Concomitant]
     Dosage: 300-450 MG TWICE A DAY, THREE TO FOUR TIMES A DAY
     Route: 048
  20. ZYPREXA [Suspect]
     Route: 048
     Dates: start: 20060301
  21. ALBUTEROL [Concomitant]
  22. PROLIXIN [Concomitant]
     Dosage: 2.5-10 MG, 1/2 AT BED TIME
  23. SEROQUEL [Suspect]
     Route: 048
     Dates: start: 19990315
  24. ADVICOR [Concomitant]

REACTIONS (4)
  - GLUCOSE TOLERANCE IMPAIRED [None]
  - WEIGHT INCREASED [None]
  - DIABETES MELLITUS [None]
  - HYPERGLYCAEMIA [None]
